FAERS Safety Report 12517138 (Version 1)
Quarter: 2016Q2

REPORT INFORMATION
  Report Type: Spontaneous
  Country: US (occurrence: US)
  Receive Date: 20160630
  Receipt Date: 20160630
  Transmission Date: 20160815
  Serious: Yes (Hospitalization, Other)
  Sender: FDA-Public Use
  Company Number: US-MYLANLABS-2016M1026702

PATIENT

DRUGS (3)
  1. ZYLOPRIM [Suspect]
     Active Substance: ALLOPURINOL
     Dosage: UNK
  2. ALLOPURINOL. [Suspect]
     Active Substance: ALLOPURINOL
     Dosage: UNK
  3. ALLOPURINOL. [Suspect]
     Active Substance: ALLOPURINOL
     Dosage: UNK

REACTIONS (2)
  - Systemic lupus erythematosus [Not Recovered/Not Resolved]
  - Osteoporosis [Not Recovered/Not Resolved]
